FAERS Safety Report 4443084-7 (Version None)
Quarter: 2004Q3

REPORT INFORMATION
  Report Type: 
  Country: None (occurrence: None)
  Receive Date: 20040903
  Receipt Date: 20040602
  Transmission Date: 20050211
  Serious: Yes (Other)
  Sender: FDA-Public Use
  Company Number: 2004UW11478

PATIENT
  Age: 64 Year
  Sex: Male
  Weight: 54.4316 kg

DRUGS (12)
  1. CRESTOR [Suspect]
     Indication: BLOOD CHOLESTEROL INCREASED
     Dosage: 10 MG QOD PO
     Route: 048
     Dates: start: 20040401
  2. HUMULIN [Concomitant]
  3. LANTUS [Concomitant]
  4. SPIRONOLACTONE [Concomitant]
  5. AMIODARONE [Concomitant]
  6. DIATEX [Concomitant]
  7. ALLOPURINOL [Concomitant]
  8. DIGITEK [Concomitant]
  9. PRILOSEC [Concomitant]
  10. ASPIRIN [Concomitant]
  11. TORSEMIDE [Concomitant]
  12. ACTONEL [Concomitant]

REACTIONS (2)
  - ABDOMINAL DISTENSION [None]
  - OEDEMA PERIPHERAL [None]
